FAERS Safety Report 14612922 (Version 2)
Quarter: 2019Q4

REPORT INFORMATION
  Report Type: Report from Study
  Country: CA (occurrence: CA)
  Receive Date: 20180308
  Receipt Date: 20191204
  Transmission Date: 20200122
  Serious: Yes (Life-Threatening, Hospitalization, Other)
  Sender: FDA-Public Use
  Company Number: CA-TEVA-2018-CA-852452

PATIENT
  Age: 44 Year
  Sex: Female

DRUGS (1)
  1. CINQAIR [Suspect]
     Active Substance: RESLIZUMAB
     Indication: ASTHMA
     Dosage: LAST DOSE BEFORE AE: 17/01/2018
     Route: 042
     Dates: start: 20170413, end: 20180117

REACTIONS (6)
  - Anaphylactic reaction [Recovering/Resolving]
  - Urticaria [Recovered/Resolved]
  - Asthma [Unknown]
  - Mast cell activation syndrome [Not Recovered/Not Resolved]
  - Anaphylactic reaction [Unknown]
  - Pruritus [Recovered/Resolved]

NARRATIVE: CASE EVENT DATE: 20180117
